FAERS Safety Report 12564958 (Version 2)
Quarter: 2016Q3

REPORT INFORMATION
  Report Type: Spontaneous
  Country: GB (occurrence: GB)
  Receive Date: 20160718
  Receipt Date: 20160723
  Transmission Date: 20161109
  Serious: Yes (Other)
  Sender: FDA-Public Use
  Company Number: GB-ACCORD-042328

PATIENT
  Age: 57 Year
  Sex: Male
  Weight: 84 kg

DRUGS (8)
  1. CLENIL MODULITE [Concomitant]
     Active Substance: BECLOMETHASONE DIPROPIONATE
     Route: 055
     Dates: start: 20150702
  2. LISINOPRIL. [Suspect]
     Active Substance: LISINOPRIL
     Indication: PRODUCT USED FOR UNKNOWN INDICATION
     Route: 048
     Dates: start: 20160316
  3. IBUPROFEN. [Concomitant]
     Active Substance: IBUPROFEN
     Dosage: 1 OR 2 TO BE TAKEN UP TO 3 TIMES A DAY.
     Dates: start: 20160620, end: 20160623
  4. CETIRIZINE [Concomitant]
     Active Substance: CETIRIZINE HYDROCHLORIDE
     Dates: start: 20160628
  5. SALBUTAMOL/SALBUTAMOL SULFATE [Concomitant]
     Dosage: 2 DF, UNKNOWN
     Route: 055
     Dates: start: 20150630
  6. E45 [Concomitant]
     Active Substance: LANOLIN\LIGHT MINERAL OIL\PARAFFIN
     Route: 061
     Dates: start: 20160628
  7. PARACETAMOL [Concomitant]
     Active Substance: ACETAMINOPHEN
     Dosage: 1 OR 2 TO BE TAKEN 3 TO 4 TIMES A DAY.
     Dates: start: 20160620, end: 20160623
  8. CAPTOPRIL. [Concomitant]
     Active Substance: CAPTOPRIL
     Dates: start: 20160628

REACTIONS (3)
  - Rash erythematous [Recovering/Resolving]
  - Skin lesion [Unknown]
  - Skin exfoliation [Unknown]

NARRATIVE: CASE EVENT DATE: 20160628
